FAERS Safety Report 11715566 (Version 2)
Quarter: 2015Q4

REPORT INFORMATION
  Report Type: Spontaneous
  Country: US (occurrence: US)
  Receive Date: 20151104
  Receipt Date: 20151110
  Transmission Date: 20160304
  Serious: No
  Sender: FDA-Public Use
  Company Number: US-ELI_LILLY_AND_COMPANY-US201106005509

PATIENT
  Age: 51 Year
  Sex: Female

DRUGS (1)
  1. FORTEO [Suspect]
     Active Substance: TERIPARATIDE
     Indication: OSTEOPOROSIS
     Dosage: 20 UG, QD
     Dates: start: 20110608, end: 201111

REACTIONS (4)
  - Dizziness [Unknown]
  - Injection site bruising [Recovered/Resolved]
  - Adverse event [Unknown]
  - Arthralgia [Unknown]

NARRATIVE: CASE EVENT DATE: 201106
